FAERS Safety Report 9266817 (Version 2)
Quarter: 2013Q3

REPORT INFORMATION
  Report Type: Spontaneous
  Country: GB (occurrence: GB)
  Receive Date: 20130502
  Receipt Date: 20130718
  Transmission Date: 20140515
  Serious: Yes (Death, Disabling, Other)
  Sender: FDA-Public Use
  Company Number: GB-009507513-1305GBR000467

PATIENT
  Age: 73 Year
  Sex: Male
  Weight: 80 kg

DRUGS (4)
  1. SIMVASTATIN [Suspect]
     Indication: ARTERIOSCLEROSIS
     Dosage: 40 MG, QD
     Route: 048
     Dates: start: 1993, end: 2009
  2. SIMVASTATIN [Suspect]
     Indication: MYOCARDIAL ISCHAEMIA
  3. ASPIRIN [Concomitant]
     Indication: MYOCARDIAL ISCHAEMIA
     Dosage: UNK
     Dates: start: 1985
  4. LEVOTHYROXINE SODIUM [Concomitant]
     Indication: JOINT ARTHROPLASTY
     Dosage: UNK
     Dates: start: 1980

REACTIONS (5)
  - Motor neurone disease [Fatal]
  - Orthopnoea [Fatal]
  - Respiratory failure [Fatal]
  - Hepatic function abnormal [Unknown]
  - Blood creatine phosphokinase increased [Unknown]
